FAERS Safety Report 13558691 (Version 1)
Quarter: 2017Q2

REPORT INFORMATION
  Report Type: Report from Study
  Country: None (occurrence: CH)
  Receive Date: 20170518
  Receipt Date: 20170518
  Transmission Date: 20170830
  Serious: Yes (Hospitalization)
  Sender: FDA-Public Use
  Company Number: CH-ABBVIE-17K-151-1975553-00

PATIENT
  Age: 71 Year
  Sex: Male

DRUGS (1)
  1. DUODOPA [Suspect]
     Active Substance: CARBIDOPA\LEVODOPA
     Indication: PARKINSON^S DISEASE
     Dosage: MORNING DOSE: 7.3ML, CONTINUOUS RATE DAY: 2.8ML/H, EXTRA DOSE: 1.0ML, 16H THERAPY
     Route: 050
     Dates: start: 20161015

REACTIONS (4)
  - Hallucination [Unknown]
  - Disorientation [Unknown]
  - Urinary tract infection [Unknown]
  - Incorrect route of drug administration [Recovered/Resolved]

NARRATIVE: CASE EVENT DATE: 20170508
